FAERS Safety Report 15886698 (Version 2)
Quarter: 2019Q1

REPORT INFORMATION
  Report Type: Spontaneous
  Country: US (occurrence: US)
  Receive Date: 20190129
  Receipt Date: 20190215
  Transmission Date: 20190417
  Serious: No
  Sender: FDA-Public Use
  Company Number: US-EX USA HOLDINGS-EXHL20190034

PATIENT
  Age: 50 Year
  Sex: Female

DRUGS (2)
  1. LORYNA [Suspect]
     Active Substance: DROSPIRENONE\ETHINYL ESTRADIOL
     Indication: MENOPAUSE
     Dosage: UNKNOWN
     Route: 048
     Dates: start: 201805
  2. LORYNA [Suspect]
     Active Substance: DROSPIRENONE\ETHINYL ESTRADIOL
     Indication: MENSTRUAL CYCLE MANAGEMENT

REACTIONS (6)
  - Product quality issue [None]
  - Metrorrhagia [Recovered/Resolved]
  - Dysmenorrhoea [Recovered/Resolved]
  - Flatulence [Recovered/Resolved]
  - Product use in unapproved indication [None]
  - Inappropriate schedule of product administration [None]

NARRATIVE: CASE EVENT DATE: 201805
